FAERS Safety Report 9161273 (Version 1)
Quarter: 2013Q1

REPORT INFORMATION
  Report Type: Spontaneous
  Country: US (occurrence: US)
  Receive Date: 20130313
  Receipt Date: 20130313
  Transmission Date: 20140127
  Serious: No
  Sender: FDA-Public Use
  Company Number: US-009507513-1303USA006088

PATIENT
  Sex: 0

DRUGS (1)
  1. SITAGLIPTIN PHOSPHATE (+) METFORMIN HYDROCHLORIDE [Suspect]
     Dosage: 500 MG, QD

REACTIONS (3)
  - Dyspepsia [Unknown]
  - Diarrhoea [Unknown]
  - Abdominal pain upper [Unknown]
